FAERS Safety Report 20525877 (Version 8)
Quarter: 2025Q4

REPORT INFORMATION
  Report Type: Spontaneous
  Country: US (occurrence: US)
  Receive Date: 20220228
  Receipt Date: 20251010
  Transmission Date: 20260118
  Serious: No
  Sender: PFIZER
  Company Number: US-PFIZER INC-2021372151

PATIENT
  Age: 71 Year
  Sex: Female

DRUGS (2)
  1. XELJANZ XR [Suspect]
     Active Substance: TOFACITINIB CITRATE
     Indication: Psoriatic arthropathy
     Dosage: 11 MG, 1X/DAY
     Route: 048
  2. XELJANZ XR [Suspect]
     Active Substance: TOFACITINIB CITRATE
     Indication: Colitis ulcerative

REACTIONS (2)
  - Spondylitis [Unknown]
  - Condition aggravated [Unknown]

NARRATIVE: CASE EVENT DATE: 20210606
